FAERS Safety Report 7825616-1 (Version None)
Quarter: 2011Q4

REPORT INFORMATION
  Report Type: 
  Country: None (occurrence: None)
  Receive Date: 20111019
  Receipt Date: 20111014
  Transmission Date: 20120403
  Serious: Yes (Other)
  Sender: FDA-Public Use
  Company Number: CA-PFIZER INC-2011246692

PATIENT
  Age: 72 Year
  Sex: Female

DRUGS (5)
  1. WARFARIN [Concomitant]
  2. SOTALOL [Concomitant]
  3. AMITRIPTYLINE [Concomitant]
  4. XALATAN [Suspect]
     Indication: GLAUCOMA
     Dosage: 1 GTT, 1X/DAY IN BOTH EYES AT BEDTIME
     Route: 047
     Dates: start: 20110601
  5. HYDROCHLOROTHIAZIDE [Concomitant]

REACTIONS (1)
  - INTRAOCULAR PRESSURE INCREASED [None]
